FAERS Safety Report 10846349 (Version 1)
Quarter: 2015Q1

REPORT INFORMATION
  Report Type: Spontaneous
  Country: US (occurrence: US)
  Receive Date: 20150220
  Receipt Date: 20150220
  Transmission Date: 20150721
  Serious: Yes (Hospitalization)
  Sender: FDA-Public Use
  Company Number: US-ASTRAZENECA-2015SE15366

PATIENT
  Age: 22639 Day
  Sex: Male
  Weight: 136.1 kg

DRUGS (2)
  1. ZOLADEX [Suspect]
     Active Substance: GOSERELIN ACETATE
     Indication: PROSTATE CANCER
     Route: 058
     Dates: start: 20141216, end: 20141216
  2. BICALUTAMIDE. [Suspect]
     Active Substance: BICALUTAMIDE
     Indication: PROSTATE CANCER
     Dosage: DAILY
     Route: 048
     Dates: start: 201412

REACTIONS (5)
  - Depression [Unknown]
  - Fatigue [Unknown]
  - Blood sodium decreased [Recovered/Resolved]
  - Bedridden [Unknown]
  - Hypophagia [Unknown]

NARRATIVE: CASE EVENT DATE: 20150123
